FAERS Safety Report 14593669 (Version 3)
Quarter: 2018Q2

REPORT INFORMATION
  Report Type: Report from Study
  Country: JP (occurrence: JP)
  Receive Date: 20180302
  Receipt Date: 20180607
  Transmission Date: 20180711
  Serious: Yes (Death, Hospitalization, Other)
  Sender: FDA-Public Use
  Company Number: JP-VIFOR (INTERNATIONAL) INC.-VIT-2018-02207

PATIENT
  Sex: Male
  Weight: 67.1 kg

DRUGS (9)
  1. ATENOLOL. [Concomitant]
     Active Substance: ATENOLOL
     Route: 048
     Dates: end: 20170705
  2. VELPHORO [Suspect]
     Active Substance: FERRIC OXYHYDROXIDE
     Indication: HYPERPHOSPHATAEMIA
     Route: 048
     Dates: start: 20170426, end: 20170704
  3. ALFACALCIDOL [Concomitant]
     Active Substance: ALFACALCIDOL
     Route: 048
     Dates: end: 20170705
  4. SENNOSIDE A+B [Concomitant]
     Active Substance: SENNOSIDES A AND B
     Route: 048
     Dates: end: 20170705
  5. CALCIUM CARBONATE. [Concomitant]
     Active Substance: CALCIUM CARBONATE
     Route: 048
     Dates: end: 20170705
  6. NELBON [Concomitant]
     Active Substance: NITRAZEPAM
     Route: 048
     Dates: end: 20170705
  7. NIFEDIPINE. [Concomitant]
     Active Substance: NIFEDIPINE
     Route: 048
     Dates: end: 20170705
  8. MIRCERA [Concomitant]
     Active Substance: METHOXY POLYETHYLENE GLYCOL-EPOETIN BETA
     Indication: NEPHROGENIC ANAEMIA
     Dates: end: 20170704
  9. CALBLOCK [Concomitant]
     Active Substance: AZELNIDIPINE
     Route: 048
     Dates: end: 20170705

REACTIONS (3)
  - Muscular weakness [Recovering/Resolving]
  - Cardiac failure congestive [Fatal]
  - Peritonitis [Recovering/Resolving]

NARRATIVE: CASE EVENT DATE: 20170619
